FAERS Safety Report 7290021-6 (Version None)
Quarter: 2011Q1

REPORT INFORMATION
  Report Type: 
  Country: None (occurrence: None)
  Receive Date: 20110201
  Receipt Date: 20110117
  Transmission Date: 20110831
  Serious: Yes (Hospitalization, Other)
  Sender: FDA-Public Use
  Company Number: THQ2011A00245

PATIENT
  Age: 73 Year
  Sex: Female

DRUGS (7)
  1. CIMETIDINE [Suspect]
     Dosage: 2400 MG (800 MG,3 IN 1 D)
     Dates: start: 20081201
  2. LANSOPRAZOLE [Suspect]
     Indication: GASTROOESOPHAGEAL REFLUX DISEASE
     Dosage: 30-60 MG (1 IN 1 D)
     Dates: start: 19940101
  3. RANITIDINE [Suspect]
  4. OMEPRAZOLE [Suspect]
     Indication: GASTROOESOPHAGEAL REFLUX DISEASE
     Dosage: 20-40 MG (1 IN 1 D)
     Dates: start: 19990101
  5. BENDROFLUMETHIAZIDE [Concomitant]
  6. PANTOPRAZOLE [Suspect]
  7. FUROSEMIDE [Concomitant]

REACTIONS (16)
  - TETANY [None]
  - DYSPEPSIA [None]
  - METABOLIC DISORDER [None]
  - DIARRHOEA [None]
  - CHEST PAIN [None]
  - CIRCULATORY COLLAPSE [None]
  - BALANCE DISORDER [None]
  - RASH PRURITIC [None]
  - HYPOMAGNESAEMIA [None]
  - ABDOMINAL PAIN [None]
  - HYPOCALCAEMIA [None]
  - PARAESTHESIA [None]
  - LETHARGY [None]
  - ARTHRALGIA [None]
  - FALL [None]
  - MUSCLE SPASMS [None]
